FAERS Safety Report 7688799-2 (Version None)
Quarter: 2011Q3

REPORT INFORMATION
  Report Type: 
  Country: None (occurrence: None)
  Receive Date: 20110817
  Receipt Date: 20110810
  Transmission Date: 20111222
  Serious: Yes (Other)
  Sender: FDA-Public Use
  Company Number: GB-ASTRAZENECA-2011SE47921

PATIENT
  Sex: Male

DRUGS (2)
  1. QUETIAPINE [Suspect]
     Indication: DELIRIUM
     Dosage: INITIATE AT 25 MG AND TITRATED TO DAILY DOSE BETWEEN 12.5 MG AND 400 MG
     Route: 048
  2. FLUCONAZOLE [Interacting]

REACTIONS (2)
  - ELECTROCARDIOGRAM QT PROLONGED [None]
  - DRUG INTERACTION [None]
